FAERS Safety Report 15677215 (Version 1)
Quarter: 2018Q4

REPORT INFORMATION
  Report Type: Spontaneous
  Country: FR (occurrence: FR)
  Receive Date: 20181130
  Receipt Date: 20181130
  Transmission Date: 20190205
  Serious: Yes (Death)
  Sender: FDA-Public Use
  Company Number: FR-PFIZER INC-2018488723

PATIENT
  Age: 81 Year
  Sex: Female
  Weight: 68 kg

DRUGS (1)
  1. CORDARONE X [Suspect]
     Active Substance: AMIODARONE HYDROCHLORIDE
     Indication: ATRIAL FIBRILLATION
     Dosage: 200 MG, 1X/DAY
     Route: 048
     Dates: start: 20151223, end: 20180524

REACTIONS (1)
  - Hyperthyroidism [Fatal]

NARRATIVE: CASE EVENT DATE: 20180524
